FAERS Safety Report 15245576 (Version 1)
Quarter: 2018Q3

REPORT INFORMATION
  Report Type: Spontaneous
  Country: US (occurrence: US)
  Receive Date: 20180713
  Receipt Date: 20180713
  Transmission Date: 20181010
  Serious: Yes (Life-Threatening)
  Sender: FDA-Public Use
  Company Number: None

PATIENT
  Age: 73 Year
  Sex: Female
  Weight: 69.85 kg

DRUGS (3)
  1. HYDROCLORITHIZE [Concomitant]
  2. SUN DOWN VIT [Concomitant]
  3. GUAFENESIN DM SYRUP [Suspect]
     Active Substance: GUAIFENESIN
     Indication: LOWER RESPIRATORY TRACT INFECTION
     Dosage: ?          QUANTITY:10 DF DOSAGE FORM;?
     Route: 048
     Dates: start: 20180508

REACTIONS (3)
  - Anxiety [None]
  - Dyspnoea [None]
  - Poor peripheral circulation [None]
